FAERS Safety Report 7241708-2 (Version None)
Quarter: 2011Q1

REPORT INFORMATION
  Report Type: 
  Country: None (occurrence: None)
  Receive Date: 20110124
  Receipt Date: 20110117
  Transmission Date: 20110831
  Serious: Yes (Other)
  Sender: FDA-Public Use
  Company Number: PHHY2010US77754

PATIENT
  Sex: Male

DRUGS (17)
  1. AMOXICILLIN AND CLAVULANATE POTASSIUM [Concomitant]
     Dosage: 1 DF, BID
     Route: 048
     Dates: start: 20100203
  2. EFFEXOR XR [Concomitant]
     Dosage: 1 DF, BID
     Dates: start: 20101105
  3. FUROSEMIDE [Concomitant]
     Dosage: 20 MG, QD
     Dates: start: 20090714
  4. FUROSEMIDE [Concomitant]
     Dosage: 40 MG, QD
  5. EXJADE [Suspect]
     Indication: THALASSAEMIA
  6. ENALAPRIL MALEATE [Concomitant]
     Dosage: 1 DF, QD
  7. OXYCODONE [Concomitant]
     Dosage: 1 DF, Q4H
     Dates: start: 20090507
  8. TESTOSTERONE [Concomitant]
     Dosage: 1 ML, QW2
  9. WARFARIN SODIUM [Concomitant]
     Dosage: 1 MG, QD
     Dates: start: 20100923
  10. WARFARIN SODIUM [Concomitant]
     Dosage: 5 MG, QD
     Dates: start: 20070620
  11. ASPIRIN [Concomitant]
  12. LEVOTHYROXINE SODIUM [Concomitant]
     Dosage: 1 DF, QD
     Dates: start: 20100702
  13. EXJADE [Suspect]
     Indication: IRON OVERLOAD
     Dosage: 1500 MG, QD
     Route: 048
     Dates: start: 20080101
  14. VITAMIN D [Concomitant]
     Dosage: 1 DF, QW
     Dates: start: 20100702
  15. CLONAZEPAM [Concomitant]
     Dosage: 1 DF, BID
     Route: 048
     Dates: start: 20091222
  16. OXYCONTIN [Concomitant]
     Dosage: 2 TABLET IN AM, 1 TABLET IN 8 HOURS AND 2 TABLETS AT HRS
     Dates: start: 20090901
  17. NORTRIPTYLINE [Concomitant]
     Dosage: 3 DF, QD
     Dates: start: 20100806

REACTIONS (7)
  - MUSCLE SPASMS [None]
  - SKIN DISCOLOURATION [None]
  - INTERNATIONAL NORMALISED RATIO DECREASED [None]
  - SWELLING [None]
  - CHEST PAIN [None]
  - VENOUS THROMBOSIS [None]
  - SUPERIOR VENA CAVA SYNDROME [None]
